FAERS Safety Report 10201377 (Version 1)
Quarter: 2014Q2

REPORT INFORMATION
  Report Type: Spontaneous
  Country: AU (occurrence: AU)
  Receive Date: 20140528
  Receipt Date: 20140528
  Transmission Date: 20141212
  Serious: Yes (Other)
  Sender: FDA-Public Use
  Company Number: PHHY2014AU062823

PATIENT
  Sex: Female

DRUGS (1)
  1. RITALIN [Suspect]
     Dosage: UNK UKN, UNK

REACTIONS (2)
  - Coeliac disease [Unknown]
  - Skin disorder [Unknown]
